FAERS Safety Report 5239923-2 (Version None)
Quarter: 2007Q1

REPORT INFORMATION
  Report Type: 
  Country: None (occurrence: None)
  Receive Date: 20070216
  Receipt Date: 20070125
  Transmission Date: 20070707
  Serious: Yes (Other)
  Sender: FDA-Public Use
  Company Number: US-PFIZER INC-2006143549

PATIENT
  Sex: Female
  Weight: 57.6 kg

DRUGS (6)
  1. BEXTRA [Suspect]
     Indication: ARTHRALGIA
  2. BEXTRA [Suspect]
     Indication: OSTEOARTHRITIS
  3. BEXTRA [Suspect]
     Indication: MUSCULOSKELETAL PAIN
  4. BEXTRA [Suspect]
     Indication: NECK PAIN
  5. BEXTRA [Suspect]
     Indication: BACK PAIN
  6. BEXTRA [Suspect]
     Indication: PAIN IN EXTREMITY

REACTIONS (1)
  - STEVENS-JOHNSON SYNDROME [None]
